FAERS Safety Report 23089244 (Version 1)
Quarter: 2023Q4

REPORT INFORMATION
  Report Type: Spontaneous
  Country: CH (occurrence: CH)
  Receive Date: 20231020
  Receipt Date: 20231020
  Transmission Date: 20240110
  Serious: Yes (Hospitalization, Other)
  Sender: FDA-Public Use
  Company Number: None

PATIENT

DRUGS (4)
  1. LAMICTAL [Suspect]
     Active Substance: LAMOTRIGINE
     Indication: Idiopathic generalised epilepsy
     Dosage: 100 MG, QD (MORNING)
     Route: 065
     Dates: start: 201901, end: 202303
  2. LAMICTAL [Suspect]
     Active Substance: LAMOTRIGINE
     Dosage: 150 MG, QD (EVENING)
     Route: 065
     Dates: start: 201901, end: 202303
  3. LAMICTAL [Suspect]
     Active Substance: LAMOTRIGINE
     Dosage: 100 MG, QD (MORNING)
     Route: 065
     Dates: start: 202309, end: 20231001
  4. LAMICTAL [Suspect]
     Active Substance: LAMOTRIGINE
     Dosage: 150 MG, QD (EVENING)
     Route: 065
     Dates: start: 202309, end: 20231001

REACTIONS (3)
  - Altered state of consciousness [Recovered/Resolved]
  - Epilepsy [Recovered/Resolved]
  - Anticonvulsant drug level above therapeutic [Recovered/Resolved]

NARRATIVE: CASE EVENT DATE: 20231001
